FAERS Safety Report 6996813-2 (Version None)
Quarter: 2010Q3

REPORT INFORMATION
  Report Type: 
  Country: None (occurrence: None)
  Receive Date: 20100918
  Receipt Date: 20090709
  Transmission Date: 20110219
  Serious: Yes (Hospitalization)
  Sender: FDA-Public Use
  Company Number: US-WYE-H10079809

PATIENT
  Sex: Female

DRUGS (6)
  1. CORDARONE [Suspect]
     Indication: PRODUCT USED FOR UNKNOWN INDICATION
     Dosage: VARIOUS DOSE; FREQUENCY UNKNOWN, STARTED APPROXIMATELY ONE MONTH AGO
     Route: 048
  2. GENTAMICIN [Concomitant]
  3. VANCOMYCIN [Concomitant]
  4. BACTRIM [Concomitant]
  5. AMIODARONE HCL [Concomitant]
     Dosage: UNKNOWN
     Route: 042
  6. VALTREX [Concomitant]

REACTIONS (2)
  - PANCYTOPENIA [None]
  - PYREXIA [None]
